FAERS Safety Report 4562182-0 (Version None)
Quarter: 2005Q1

REPORT INFORMATION
  Report Type: 
  Country: None (occurrence: None)
  Receive Date: 20050124
  Receipt Date: 20050105
  Transmission Date: 20050727
  Serious: Yes (Other)
  Sender: FDA-Public Use
  Company Number: B0364023A

PATIENT
  Age: 49 Year
  Sex: Male

DRUGS (1)
  1. EPIVIR-HBV [Suspect]
     Indication: HEPATITIS B
     Dosage: 100 MG/PER DAY/ORAL
     Route: 048
     Dates: start: 19941201, end: 19990201

REACTIONS (6)
  - ACUTE PROMYELOCYTIC LEUKAEMIA [None]
  - ALANINE AMINOTRANSFERASE INCREASED [None]
  - ECCHYMOSIS [None]
  - GINGIVAL BLEEDING [None]
  - PLATELET COUNT DECREASED [None]
  - VIRAL MUTATION IDENTIFIED [None]
